FAERS Safety Report 11124702 (Version 1)
Quarter: 2015Q2

REPORT INFORMATION
  Report Type: Spontaneous
  Country: IL (occurrence: IL)
  Receive Date: 20150520
  Receipt Date: 20150520
  Transmission Date: 20150821
  Serious: Yes (Other)
  Sender: FDA-Public Use
  Company Number: IL-BEH-2013036631

PATIENT
  Age: 42 Year
  Sex: Female

DRUGS (6)
  1. IVIG [Suspect]
     Active Substance: HUMAN IMMUNOGLOBULIN G
     Indication: NECROSIS
  2. IVIG [Suspect]
     Active Substance: HUMAN IMMUNOGLOBULIN G
     Indication: NECROSIS
  3. CYCLOPHOSPHAMIDE. [Concomitant]
     Active Substance: CYCLOPHOSPHAMIDE
  4. ANTIBIOTICS [Concomitant]
     Active Substance: UNSPECIFIED INGREDIENT
     Indication: INFECTION
  5. CORTICOSTEROIDS [Concomitant]
     Active Substance: CORTICOSTEROID NOS
  6. ILOPROST [Concomitant]
     Active Substance: ILOPROST

REACTIONS (3)
  - Soft tissue necrosis [Recovered/Resolved]
  - Drug ineffective for unapproved indication [Recovered/Resolved]
  - Vasculitis [Recovered/Resolved]
